FAERS Safety Report 7216203-7 (Version None)
Quarter: 2011Q1

REPORT INFORMATION
  Report Type: 
  Country: None (occurrence: None)
  Receive Date: 20110107
  Receipt Date: 20101228
  Transmission Date: 20110831
  Serious: Yes (Other)
  Sender: FDA-Public Use
  Company Number: PHHY2010DE89594

PATIENT
  Sex: Male

DRUGS (2)
  1. SANDIMMUNE [Suspect]
     Indication: HEART TRANSPLANT
  2. CERTICAN [Suspect]
     Indication: HEART TRANSPLANT

REACTIONS (1)
  - BLOOD ALKALINE PHOSPHATASE INCREASED [None]
